FAERS Safety Report 4688449-3 (Version None)
Quarter: 2005Q2

REPORT INFORMATION
  Report Type: 
  Country: None (occurrence: None)
  Receive Date: 20050609
  Receipt Date: 20050524
  Transmission Date: 20051028
  Serious: Yes (Other)
  Sender: FDA-Public Use
  Company Number: 214736

PATIENT
  Age: 33 Year
  Sex: Male
  Weight: 59 kg

DRUGS (8)
  1. RITUXAN [Suspect]
     Indication: NON-HODGKIN'S LYMPHOMA
     Dosage: 630 MG, INTRAVENOUS
     Route: 042
     Dates: start: 20020208
  2. ETOPOSIDE [Suspect]
     Indication: NON-HODGKIN'S LYMPHOMA
     Dosage: 80 MG, INTRAVENOUS
     Route: 042
     Dates: start: 20020209
  3. ONCOVIN [Suspect]
     Indication: NON-HODGKIN'S LYMPHOMA
     Dosage: 0.6 MG
     Dates: start: 20020209
  4. ADRIACIN (DOXORUBICIN HYDROCHLORIDE, DOXORUBICIN) [Suspect]
     Indication: NON-HODGKIN'S LYMPHOMA
     Dosage: 16 MG, INTRAVENOUS
     Route: 042
     Dates: start: 20020209
  5. PREDONINE (PREDNISOLONE ACETATE, PREDNISOLONE, PREDNISOLONE SODIUM SUC [Suspect]
     Indication: NON-HODGKIN'S LYMPHOMA
     Dosage: SEE IMAGE, ORAL
     Route: 048
     Dates: start: 20020209, end: 20020212
  6. PREDONINE (PREDNISOLONE ACETATE, PREDNISOLONE, PREDNISOLONE SODIUM SUC [Suspect]
     Indication: NON-HODGKIN'S LYMPHOMA
     Dosage: SEE IMAGE, ORAL
     Route: 048
     Dates: start: 20020314, end: 20020320
  7. CYCLOPHOSPHAMIDE [Suspect]
     Indication: NON-HODGKIN'S LYMPHOMA
     Dosage: 1200 MG, INTRAVENOUS
     Route: 042
     Dates: start: 20020214
  8. SOLU-CORTEF [Concomitant]

REACTIONS (5)
  - BLOOD ALKALINE PHOSPHATASE INCREASED [None]
  - DISEASE RECURRENCE [None]
  - INFECTION [None]
  - NEUROPATHY PERIPHERAL [None]
  - PANCYTOPENIA [None]
